FAERS Safety Report 7952122-6 (Version None)
Quarter: 2011Q4

REPORT INFORMATION
  Report Type: 
  Country: None (occurrence: None)
  Receive Date: 20111201
  Receipt Date: 20111128
  Transmission Date: 20120403
  Serious: Yes (Death)
  Sender: FDA-Public Use
  Company Number: PHEH2011US010358

PATIENT
  Sex: Male

DRUGS (17)
  1. VITAMIN B-12 [Concomitant]
  2. ZANTAC [Concomitant]
  3. TOPROL-XL [Concomitant]
  4. SUTENT [Concomitant]
  5. CALCIUM [Concomitant]
  6. AMLODIPINE [Concomitant]
  7. MULTI-VITAMINS [Concomitant]
  8. LIBRAX [Concomitant]
  9. NEXAVAR [Concomitant]
  10. GLEEVEC [Suspect]
     Dosage: 400 MG, QD
     Route: 048
  11. MIRALAX [Concomitant]
  12. DIOVAN [Concomitant]
  13. DOXEPIN [Concomitant]
  14. IRON [Concomitant]
  15. ALDACTONE [Concomitant]
  16. NEXIUM [Concomitant]
  17. METHOTREXATE [Concomitant]

REACTIONS (1)
  - DEATH [None]
